FAERS Safety Report 13594274 (Version 16)
Quarter: 2018Q2

REPORT INFORMATION
  Report Type: Report from Study
  Country: US (occurrence: US)
  Receive Date: 20170530
  Receipt Date: 20180625
  Transmission Date: 20180711
  Serious: Yes (Hospitalization, Other)
  Sender: FDA-Public Use
  Company Number: US-ACTELION-A-NJ2017-154486

PATIENT
  Age: 60 Year
  Sex: Female
  Weight: 117.1 kg

DRUGS (8)
  1. UPTRAVI [Suspect]
     Active Substance: SELEXIPAG
     Indication: PULMONARY ARTERIAL HYPERTENSION
     Dosage: 800 MCG, BID
     Route: 048
     Dates: start: 20171103
  2. UPTRAVI [Suspect]
     Active Substance: SELEXIPAG
     Dosage: 1400 MCG, BID
     Route: 048
  3. UPTRAVI [Suspect]
     Active Substance: SELEXIPAG
     Dosage: 400 MCG, BID
     Route: 048
  4. OXYGEN. [Concomitant]
     Active Substance: OXYGEN
  5. OPSUMIT [Suspect]
     Active Substance: MACITENTAN
     Indication: PULMONARY ARTERIAL HYPERTENSION
     Dosage: 10 MG, QD
     Route: 048
     Dates: start: 20151014
  6. UPTRAVI [Suspect]
     Active Substance: SELEXIPAG
     Dosage: 600 MCG, BID
     Route: 048
     Dates: start: 20170327
  7. UPTRAVI [Suspect]
     Active Substance: SELEXIPAG
     Dosage: 1200 MCG, BID
     Route: 048
  8. SILDENAFIL. [Concomitant]
     Active Substance: SILDENAFIL

REACTIONS (27)
  - Hepatic haemorrhage [Unknown]
  - Oxygen consumption [Unknown]
  - Condition aggravated [Recovering/Resolving]
  - Hepatic encephalopathy [Recovered/Resolved]
  - Dizziness [Recovering/Resolving]
  - Fatigue [Recovering/Resolving]
  - Diarrhoea [Unknown]
  - Chest pain [Unknown]
  - Platelet count decreased [Recovering/Resolving]
  - Haemoglobin decreased [Recovering/Resolving]
  - Dyspnoea [Unknown]
  - Packed red blood cell transfusion [Recovering/Resolving]
  - Weight decreased [Unknown]
  - Myalgia [Unknown]
  - Fluid retention [Unknown]
  - Peripheral swelling [Unknown]
  - Coma [Unknown]
  - Ammonia increased [Unknown]
  - Photophobia [Unknown]
  - Back pain [Unknown]
  - Muscle spasms [Unknown]
  - Headache [Unknown]
  - Haemorrhoids [Recovering/Resolving]
  - Pneumonia [Unknown]
  - Blood potassium decreased [Unknown]
  - Arthralgia [Unknown]
  - Anaemia [Recovering/Resolving]

NARRATIVE: CASE EVENT DATE: 201712
